FAERS Safety Report 8198125-0 (Version None)
Quarter: 2012Q1

REPORT INFORMATION
  Report Type: 
  Country: None (occurrence: None)
  Receive Date: 20120309
  Receipt Date: 20120223
  Transmission Date: 20120608
  Serious: Yes (Hospitalization, Other)
  Sender: FDA-Public Use
  Company Number: US-WATSON-2012-03580

PATIENT
  Age: 45 Year
  Sex: Female
  Weight: 61.8 kg

DRUGS (2)
  1. VALPROATE SODIUM [Suspect]
     Indication: SCHIZOAFFECTIVE DISORDER
     Dosage: 1500 MG, DAILY
     Route: 065
  2. VALPROATE SODIUM [Suspect]
     Indication: BIPOLAR DISORDER
     Dosage: 1000 MG, DAILY
     Route: 065

REACTIONS (18)
  - CONDITION AGGRAVATED [None]
  - THINKING ABNORMAL [None]
  - HYPERAMMONAEMIA [None]
  - DYSPNOEA [None]
  - HALLUCINATION, VISUAL [None]
  - AGITATION [None]
  - CONVERSION DISORDER [None]
  - UNRESPONSIVE TO STIMULI [None]
  - FOAMING AT MOUTH [None]
  - SELF INJURIOUS BEHAVIOUR [None]
  - PSYCHOTIC DISORDER [None]
  - DEPRESSED LEVEL OF CONSCIOUSNESS [None]
  - VOMITING [None]
  - DRUG LEVEL INCREASED [None]
  - HALLUCINATION, AUDITORY [None]
  - LETHARGY [None]
  - CONFUSIONAL STATE [None]
  - URINARY INCONTINENCE [None]
